FAERS Safety Report 22374907 (Version 2)
Quarter: 2023Q2

REPORT INFORMATION
  Report Type: Report from Study
  Country: US (occurrence: US)
  Receive Date: 20230527
  Receipt Date: 20230605
  Transmission Date: 20230722
  Serious: No
  Sender: FDA-Public Use
  Company Number: US-002147023-NVSC2023US116884

PATIENT
  Age: 12 Year
  Sex: Female

DRUGS (2)
  1. ILARIS [Suspect]
     Active Substance: CANAKINUMAB
     Indication: Pyrexia
     Dosage: 150 MG, Q3W
     Route: 058
     Dates: start: 202207
  2. ILARIS [Suspect]
     Active Substance: CANAKINUMAB
     Dosage: LAST INJECTION
     Route: 065
     Dates: start: 20230428

REACTIONS (6)
  - Arthralgia [Unknown]
  - Condition aggravated [Unknown]
  - Pyrexia [Unknown]
  - Abdominal pain upper [Not Recovered/Not Resolved]
  - Pain in extremity [Not Recovered/Not Resolved]
  - Inappropriate schedule of product administration [Unknown]

NARRATIVE: CASE EVENT DATE: 20230508
